FAERS Safety Report 8574981-9 (Version None)
Quarter: 2012Q2

REPORT INFORMATION
  Report Type: 
  Country: None (occurrence: None)
  Receive Date: 20120423
  Receipt Date: 20100715
  Transmission Date: 20120825
  Serious: Yes (Death, Hospitalization, Other)
  Sender: FDA-Public Use
  Company Number: PHEH2009US14835

PATIENT
  Age: 47 Year
  Sex: Male

DRUGS (1)
  1. EXJADE [Suspect]
     Indication: ACUTE MYELOID LEUKAEMIA
     Dosage: 1750 MG, QD ORAL
     Route: 048
     Dates: start: 20090917, end: 20090924

REACTIONS (4)
  - RENAL FAILURE [None]
  - INFECTION [None]
  - BONE MARROW TRANSPLANT REJECTION [None]
  - ACUTE MYELOID LEUKAEMIA RECURRENT [None]
